FAERS Safety Report 24561039 (Version 1)
Quarter: 2024Q4

REPORT INFORMATION
  Report Type: Spontaneous
  Country: IN (occurrence: IN)
  Receive Date: 20241029
  Receipt Date: 20241029
  Transmission Date: 20250114
  Serious: Yes (Death, Other)
  Sender: ADMA BIOLOGICS
  Company Number: US-ADMA BIOLOGICS INC.-IN-2024ADM000156

PATIENT
  Age: 14 Day
  Sex: Male

DRUGS (1)
  1. HUMAN IMMUNOGLOBULIN G [Suspect]
     Active Substance: HUMAN IMMUNOGLOBULIN G
     Indication: Prophylaxis
     Dosage: 400 MG/KG, UNK
     Route: 042

REACTIONS (3)
  - Disseminated varicella zoster virus infection [Fatal]
  - Lethargy [Unknown]
  - Off label use [Unknown]
